FAERS Safety Report 7922004-4 (Version None)
Quarter: 2011Q4

REPORT INFORMATION
  Report Type: 
  Country: None (occurrence: None)
  Receive Date: 20111117
  Receipt Date: 20111114
  Transmission Date: 20120403
  Serious: Yes (Hospitalization)
  Sender: FDA-Public Use
  Company Number: US-GILEAD-2011-0044586

PATIENT
  Sex: Female

DRUGS (5)
  1. LETAIRIS [Suspect]
     Indication: HYPOXIA
  2. TYVASO [Concomitant]
  3. LETAIRIS [Suspect]
     Indication: INTERSTITIAL LUNG DISEASE
  4. REVATIO [Concomitant]
  5. LETAIRIS [Suspect]
     Indication: PULMONARY HYPERTENSION
     Dosage: 10 MG, UNK
     Route: 048
     Dates: start: 20110611

REACTIONS (2)
  - HEPATIC ENZYME INCREASED [None]
  - CHOLELITHIASIS [None]
